FAERS Safety Report 4270759-5 (Version None)
Quarter: 2004Q1

REPORT INFORMATION
  Report Type: 
  Country: None (occurrence: None)
  Receive Date: 20040114
  Receipt Date: 20040106
  Transmission Date: 20041129
  Serious: Yes (Hospitalization)
  Sender: FDA-Public Use
  Company Number: FR-ROCHE-355163

PATIENT
  Age: 23 Year
  Sex: Male
  Weight: 146 kg

DRUGS (5)
  1. ROCEPHIN [Suspect]
     Route: 030
     Dates: start: 20031025, end: 20031028
  2. SURBRONC [Suspect]
     Route: 048
     Dates: start: 20031025, end: 20031028
  3. PNEUMOREL [Suspect]
     Route: 048
     Dates: start: 20031025, end: 20031028
  4. VENTOLIN [Suspect]
     Dosage: UNITS REPORTED AS RG.
     Route: 055
     Dates: start: 20031025, end: 20031028
  5. PIVALONE [Suspect]
     Dosage: ROUTE REPORTED AS NASAL.
     Route: 050
     Dates: start: 20031025, end: 20031028

REACTIONS (2)
  - SUPERINFECTION [None]
  - VASCULAR PURPURA [None]
